FAERS Safety Report 23977826 (Version 1)
Quarter: 2024Q2

REPORT INFORMATION
  Report Type: Spontaneous
  Country: US (occurrence: US)
  Receive Date: 20240614
  Receipt Date: 20240614
  Transmission Date: 20240715
  Serious: No
  Sender: FDA-Public Use
  Company Number: ENDB23-03818

PATIENT
  Sex: Female

DRUGS (3)
  1. SUPPRELIN LA [Suspect]
     Active Substance: HISTRELIN ACETATE
     Indication: Product used for unknown indication
     Dosage: 50 MILLIGRAM, UNKNOWN (LAST IMPLANT INSERTION)
     Route: 058
     Dates: start: 20230824
  2. SUPPRELIN LA [Suspect]
     Active Substance: HISTRELIN ACETATE
     Dosage: 50 MILLIGRAM, UNKNOWN
     Route: 058
     Dates: start: 202108
  3. SUPPRELIN LA [Suspect]
     Active Substance: HISTRELIN ACETATE
     Dosage: 50 MILLIGRAM, UNKNOWN
     Route: 058

REACTIONS (3)
  - Rash pruritic [Recovering/Resolving]
  - Incorrect product administration duration [Recovered/Resolved]
  - Device issue [None]

NARRATIVE: CASE EVENT DATE: 20230101
